FAERS Safety Report 8263821-3 (Version None)
Quarter: 2012Q2

REPORT INFORMATION
  Report Type: 
  Country: None (occurrence: None)
  Receive Date: 20120405
  Receipt Date: 20120403
  Transmission Date: 20120825
  Serious: Yes (Other)
  Sender: FDA-Public Use
  Company Number: US-GILEAD-2012-0052684

PATIENT
  Age: 34 Year
  Sex: Female

DRUGS (4)
  1. EMTRICITABINE AND TENOFOVIR DISOPROXIL FUMARATE [Suspect]
     Indication: HIV INFECTION
     Dosage: 1 DF, QD
     Route: 048
     Dates: start: 20110607, end: 20120124
  2. EFAVIRENZ [Concomitant]
     Indication: HIV INFECTION
     Dosage: 600 MG, QD
     Route: 048
     Dates: start: 20110607, end: 20120124
  3. COMBIVIR [Concomitant]
     Indication: HIV INFECTION
     Dosage: 2 DF, QD
     Route: 048
     Dates: start: 20120124
  4. LOPINAVIR/RITONAVIR [Concomitant]
     Indication: HIV INFECTION
     Dosage: 4 DF, QD
     Route: 048
     Dates: start: 20120124

REACTIONS (1)
  - ABORTION SPONTANEOUS [None]
